FAERS Safety Report 8060445-8 (Version None)
Quarter: 2012Q1

REPORT INFORMATION
  Report Type: 
  Country: None (occurrence: None)
  Receive Date: 20120120
  Receipt Date: 20120110
  Transmission Date: 20120608
  Serious: Yes (Hospitalization)
  Sender: FDA-Public Use
  Company Number: FR-GLAXOSMITHKLINE-B0774503A

PATIENT
  Age: 72 Year
  Sex: Male

DRUGS (6)
  1. CARBOPLATIN [Suspect]
     Indication: TRANSITIONAL CELL CARCINOMA
     Dosage: 120MG CYCLIC
     Route: 042
     Dates: start: 20111116, end: 20111116
  2. ZANTAC [Suspect]
     Indication: PREMEDICATION
     Dosage: 50MG CYCLIC
     Route: 042
     Dates: start: 20111116, end: 20111116
  3. POLARAMINE [Suspect]
     Indication: PREMEDICATION
     Dosage: 2MG CYCLIC
     Route: 048
     Dates: start: 20111116, end: 20111116
  4. ZOFRAN [Suspect]
     Indication: PREMEDICATION
     Dosage: 8MG CYCLIC
     Route: 042
     Dates: start: 20111116, end: 20111116
  5. PACLITAXEL [Suspect]
     Indication: TRANSITIONAL CELL CARCINOMA
     Dosage: 160MG CYCLIC
     Route: 042
     Dates: start: 20111116, end: 20111116
  6. METHYLPREDNISOLONE [Suspect]
     Indication: PREMEDICATION
     Dosage: 60MG CYCLIC
     Route: 042
     Dates: start: 20111116, end: 20111116

REACTIONS (2)
  - HYPERSENSITIVITY [None]
  - ERYTHEMA [None]
